FAERS Safety Report 9818974 (Version 1)
Quarter: 2014Q1

REPORT INFORMATION
  Report Type: Spontaneous
  Country: US (occurrence: None)
  Receive Date: 20140114
  Receipt Date: 20140114
  Transmission Date: 20141002
  Serious: Yes (Other)
  Sender: FDA-Public Use
  Company Number: None

PATIENT
  Age: 7 Month
  Sex: Male
  Weight: 8.07 kg

DRUGS (2)
  1. AMOXICILLIN 250/5ML [Suspect]
     Indication: OTITIS MEDIA
     Route: 048
     Dates: start: 20140110, end: 20140112
  2. AMOXICILLIN 250/5ML [Suspect]
     Indication: TONSILLITIS
     Route: 048
     Dates: start: 20140110, end: 20140112

REACTIONS (1)
  - Rash generalised [None]
